FAERS Safety Report 7986036 (Version 4)
Quarter: 2012Q4

REPORT INFORMATION
  Report Type: 
  Country: JP (occurrence: JP)
  Receive Date: 20110610
  Receipt Date: 20121127
  Transmission Date: 20130627
  Serious: Yes (Other)
  Sender: FDA-Public Use
  Company Number: PHHY2011JP47797

PATIENT
  Age: 74 Year
  Sex: Male
  Weight: 63 kg

DRUGS (11)
  1. AFINITOR [Suspect]
     Indication: METASTATIC RENAL CELL CARCINOMA
     Dosage: 10 mg, daily
     Route: 048
     Dates: start: 20110314, end: 20110407
  2. AFINITOR [Suspect]
     Dosage: 5 mg, daily
     Route: 048
     Dates: start: 20110421, end: 20110512
  3. AFINITOR [Suspect]
     Dosage: 5 mg, Daily
     Route: 048
     Dates: start: 20110527, end: 20110608
  4. AFINITOR [Suspect]
     Dosage: 5 mg, Daily
     Route: 048
     Dates: start: 20110624, end: 20110714
  5. AFINITOR [Suspect]
     Dosage: 5 mg, Daily
     Route: 048
     Dates: start: 20110722, end: 20110814
  6. AFINITOR [Suspect]
     Dosage: 10 mg, Daily
     Route: 048
     Dates: start: 20110815
  7. NU-LOTAN [Concomitant]
     Indication: HYPERTENSION
     Dosage: 25 mg
     Route: 048
  8. NU-LOTAN [Concomitant]
     Dosage: 25 mg,
     Dates: end: 20110420
  9. AZUNOL [Concomitant]
     Indication: PROPHYLAXIS
     Dosage: 5 ml
     Route: 048
     Dates: start: 20110310
  10. AZUNOL [Concomitant]
     Dosage: 5 ml,
     Route: 048
  11. FERO-GRADUMET [Concomitant]
     Indication: PROPHYLAXIS
     Dosage: 105 mg,
     Route: 048
     Dates: start: 20110526

REACTIONS (5)
  - Bone marrow failure [Recovered/Resolved]
  - Haemoglobin decreased [Unknown]
  - Anaemia [Not Recovered/Not Resolved]
  - C-reactive protein increased [Unknown]
  - Lymphocyte count decreased [Unknown]
